FAERS Safety Report 4357619-6 (Version None)
Quarter: 2004Q2

REPORT INFORMATION
  Report Type: 
  Country: None (occurrence: None)
  Receive Date: 20040510
  Receipt Date: 20040427
  Transmission Date: 20050107
  Serious: Yes (Other)
  Sender: FDA-Public Use
  Company Number: 30019563-NA01-1

PATIENT
  Age: 15 Year
  Sex: Male
  Weight: 53 kg

DRUGS (5)
  1. DIANEAL LOW CALCIUM W/ DEXTROSE 1.5% [Suspect]
     Indication: PERITONEAL DIALYSIS
     Dosage: INTRAPERITONEAL
     Route: 033
     Dates: start: 20031201
  2. CALCITRIOL [Concomitant]
  3. EPOGEN [Concomitant]
  4. CALCIUM CARBONATE [Concomitant]
  5. SODIUM BICARBONATE [Concomitant]

REACTIONS (2)
  - PROCEDURAL COMPLICATION [None]
  - PRURITUS [None]
